FAERS Safety Report 5456600-3 (Version None)
Quarter: 2007Q3

REPORT INFORMATION
  Report Type: 
  Country: None (occurrence: None)
  Receive Date: 20070917
  Receipt Date: 20070917
  Transmission Date: 20080115
  Serious: No
  Sender: FDA-Public Use
  Company Number: None

PATIENT
  Sex: Female
  Weight: 62.1428 kg

DRUGS (2)
  1. FENTANYL [Suspect]
     Indication: MIGRAINE
     Dosage: 25 MICROGRAMS 3 DAYS TRANSDERM
     Route: 062
     Dates: start: 20070828, end: 20070831
  2. FENTANYL [Suspect]
     Indication: STAPHYLOCOCCAL SEPSIS
     Dosage: 25 MICROGRAMS 3 DAYS TRANSDERM
     Route: 062
     Dates: start: 20070828, end: 20070831

REACTIONS (3)
  - ADVERSE DRUG REACTION [None]
  - APPLICATION SITE RASH [None]
  - PRURITUS [None]
